FAERS Safety Report 4645862-8 (Version None)
Quarter: 2005Q2

REPORT INFORMATION
  Report Type: 
  Country: None (occurrence: None)
  Receive Date: 20050425
  Receipt Date: 20050413
  Transmission Date: 20051028
  Serious: Yes (Hospitalization)
  Sender: FDA-Public Use
  Company Number: HQWYE504118NOV04

PATIENT
  Age: 45 Year
  Sex: Male
  Weight: 79.3 kg

DRUGS (14)
  1. RAPAMUNE [Suspect]
     Indication: PROPHYLAXIS AGAINST TRANSPLANT REJECTION
     Dosage: 8 MG 1X PER 1 DAY, ORAL
     Route: 048
     Dates: start: 20041003
  2. MEDROL [Suspect]
     Indication: PROPHYLAXIS AGAINST TRANSPLANT REJECTION
  3. PROGRAF [Suspect]
     Indication: PROPHYLAXIS AGAINST TRANSPLANT REJECTION
  4. MAALOX (ALUMINIUM HYDROXIDE GEL/MAGNESIUM HYDROXIDE) [Concomitant]
  5. ALTERNAGEL (ALUMINIUM HYDROXIDE GEL, DRIED) [Concomitant]
  6. MULTIVITAMINS (ASCORBIC ACID/ERGOCALCIFEROL/FOLIC ACID/NICOTINAMIDE/PA [Concomitant]
  7. NYSTATIN [Concomitant]
  8. PROTONIX [Concomitant]
  9. VALCYTE [Concomitant]
  10. BACTRIM [Concomitant]
  11. ACETYLSALICYLIC ACID SRT [Concomitant]
  12. K-PHOS (POTASSIUM PHOSPHATE MONOBASIC) [Concomitant]
  13. LOPRESSOR [Concomitant]
  14. ADALAT [Concomitant]

REACTIONS (7)
  - ARTERIOSCLEROSIS [None]
  - EPIDIDYMAL CYST [None]
  - EPIDIDYMITIS [None]
  - GLOMERULONEPHRITIS FOCAL [None]
  - HYDROCELE [None]
  - HYDRONEPHROSIS [None]
  - KIDNEY TRANSPLANT REJECTION [None]
